FAERS Safety Report 4831984-5 (Version None)
Quarter: 2005Q4

REPORT INFORMATION
  Report Type: 
  Country: None (occurrence: None)
  Receive Date: 20051118
  Receipt Date: 20051114
  Transmission Date: 20060501
  Serious: Yes (Hospitalization)
  Sender: FDA-Public Use
  Company Number: FR-BRISTOL-MYERS SQUIBB COMPANY-13182399

PATIENT
  Age: 60 Year
  Sex: Male

DRUGS (1)
  1. TAXOL [Suspect]
     Indication: HYPOPHARYNGEAL CANCER
     Route: 042
     Dates: start: 20050915, end: 20050915

REACTIONS (2)
  - ANGINA UNSTABLE [None]
  - CORONARY ARTERY DISEASE [None]
